FAERS Safety Report 25978938 (Version 1)
Quarter: 2025Q4

REPORT INFORMATION
  Report Type: Spontaneous
  Country: JP (occurrence: JP)
  Receive Date: 20251030
  Receipt Date: 20251030
  Transmission Date: 20260119
  Serious: Yes (Hospitalization)
  Sender: MYLAN
  Company Number: JP-MYLANLABS-2025M1091329

PATIENT
  Age: 64 Year
  Sex: Female

DRUGS (28)
  1. MYCOPHENOLATE MOFETIL [Suspect]
     Active Substance: MYCOPHENOLATE MOFETIL
     Indication: Prophylaxis against graft versus host disease
  2. MYCOPHENOLATE MOFETIL [Suspect]
     Active Substance: MYCOPHENOLATE MOFETIL
     Route: 065
  3. MYCOPHENOLATE MOFETIL [Suspect]
     Active Substance: MYCOPHENOLATE MOFETIL
     Route: 065
  4. MYCOPHENOLATE MOFETIL [Suspect]
     Active Substance: MYCOPHENOLATE MOFETIL
  5. CYCLOPHOSPHAMIDE [Suspect]
     Active Substance: CYCLOPHOSPHAMIDE
     Indication: T-cell chronic lymphocytic leukaemia
     Dosage: FOR 7 DAYS
  6. CYCLOPHOSPHAMIDE [Suspect]
     Active Substance: CYCLOPHOSPHAMIDE
     Dosage: FOR 7 DAYS
  7. CYCLOPHOSPHAMIDE [Suspect]
     Active Substance: CYCLOPHOSPHAMIDE
     Dosage: FOR 7 DAYS
     Route: 048
  8. CYCLOPHOSPHAMIDE [Suspect]
     Active Substance: CYCLOPHOSPHAMIDE
     Dosage: FOR 7 DAYS
     Route: 048
  9. CYCLOPHOSPHAMIDE [Suspect]
     Active Substance: CYCLOPHOSPHAMIDE
     Dosage: 50 MILLIGRAM, QD
  10. CYCLOPHOSPHAMIDE [Suspect]
     Active Substance: CYCLOPHOSPHAMIDE
     Dosage: 50 MILLIGRAM, QD
  11. CYCLOPHOSPHAMIDE [Suspect]
     Active Substance: CYCLOPHOSPHAMIDE
     Dosage: 50 MILLIGRAM, QD
     Route: 048
  12. CYCLOPHOSPHAMIDE [Suspect]
     Active Substance: CYCLOPHOSPHAMIDE
     Dosage: 50 MILLIGRAM, QD
     Route: 048
  13. PREDNISOLONE [Suspect]
     Active Substance: PREDNISOLONE
     Indication: T-cell chronic lymphocytic leukaemia
  14. PREDNISOLONE [Suspect]
     Active Substance: PREDNISOLONE
     Route: 065
  15. PREDNISOLONE [Suspect]
     Active Substance: PREDNISOLONE
     Route: 065
  16. PREDNISOLONE [Suspect]
     Active Substance: PREDNISOLONE
  17. FLUDARABINE [Suspect]
     Active Substance: FLUDARABINE PHOSPHATE
     Indication: Prophylaxis against graft versus host disease
  18. FLUDARABINE [Suspect]
     Active Substance: FLUDARABINE PHOSPHATE
     Route: 065
  19. FLUDARABINE [Suspect]
     Active Substance: FLUDARABINE PHOSPHATE
     Route: 065
  20. FLUDARABINE [Suspect]
     Active Substance: FLUDARABINE PHOSPHATE
  21. BUSULFAN [Suspect]
     Active Substance: BUSULFAN
     Indication: Prophylaxis against graft versus host disease
  22. BUSULFAN [Suspect]
     Active Substance: BUSULFAN
     Route: 065
  23. BUSULFAN [Suspect]
     Active Substance: BUSULFAN
     Route: 065
  24. BUSULFAN [Suspect]
     Active Substance: BUSULFAN
  25. TACROLIMUS [Suspect]
     Active Substance: TACROLIMUS
     Indication: Prophylaxis against graft versus host disease
  26. TACROLIMUS [Suspect]
     Active Substance: TACROLIMUS
     Route: 065
  27. TACROLIMUS [Suspect]
     Active Substance: TACROLIMUS
     Route: 065
  28. TACROLIMUS [Suspect]
     Active Substance: TACROLIMUS

REACTIONS (1)
  - Drug ineffective [Unknown]
